FAERS Safety Report 24335082 (Version 1)
Quarter: 2024Q3

REPORT INFORMATION
  Report Type: Spontaneous
  Country: US (occurrence: US)
  Receive Date: 20240918
  Receipt Date: 20240918
  Transmission Date: 20241017
  Serious: Yes (Life-Threatening, Other)
  Sender: NOVARTIS
  Company Number: US-002147023-NVSC2024US183108

PATIENT
  Sex: Female

DRUGS (16)
  1. ENTRESTO [Suspect]
     Active Substance: SACUBITRIL\VALSARTAN
     Indication: Peripartum cardiomyopathy
     Dosage: UNK
     Route: 065
  2. ENTRESTO [Suspect]
     Active Substance: SACUBITRIL\VALSARTAN
     Indication: Cardiac failure acute
  3. ENTRESTO [Suspect]
     Active Substance: SACUBITRIL\VALSARTAN
     Indication: Ejection fraction decreased
  4. JARDIANCE [Suspect]
     Active Substance: EMPAGLIFLOZIN
     Indication: Peripartum cardiomyopathy
     Dosage: UNK
     Route: 065
  5. JARDIANCE [Suspect]
     Active Substance: EMPAGLIFLOZIN
     Indication: Cardiac failure acute
  6. JARDIANCE [Suspect]
     Active Substance: EMPAGLIFLOZIN
     Indication: Ejection fraction decreased
  7. SPIRONOLACTONE [Suspect]
     Active Substance: SPIRONOLACTONE
     Indication: Peripartum cardiomyopathy
     Dosage: UNK
     Route: 065
  8. SPIRONOLACTONE [Suspect]
     Active Substance: SPIRONOLACTONE
     Indication: Cardiac failure acute
  9. SPIRONOLACTONE [Suspect]
     Active Substance: SPIRONOLACTONE
     Indication: Ejection fraction
  10. SPIRONOLACTONE [Suspect]
     Active Substance: SPIRONOLACTONE
     Indication: Ejection fraction decreased
  11. CARVEDILOL [Suspect]
     Active Substance: CARVEDILOL
     Indication: Peripartum cardiomyopathy
     Dosage: UNK
     Route: 065
  12. CARVEDILOL [Suspect]
     Active Substance: CARVEDILOL
     Indication: Cardiac failure acute
  13. CARVEDILOL [Suspect]
     Active Substance: CARVEDILOL
     Indication: Ejection fraction decreased
  14. LASIX [Suspect]
     Active Substance: FUROSEMIDE
     Indication: Peripartum cardiomyopathy
     Dosage: UNK  (PRESCRIBED AS NEEDED, BUT INITIALLY DAILY)
     Route: 065
  15. LASIX [Suspect]
     Active Substance: FUROSEMIDE
     Indication: Cardiac failure acute
  16. LASIX [Suspect]
     Active Substance: FUROSEMIDE
     Indication: Ejection fraction decreased

REACTIONS (18)
  - Heart rate irregular [Unknown]
  - Partial seizures [Unknown]
  - Seizure [Unknown]
  - Syncope [Unknown]
  - Peripheral swelling [Recovered/Resolved]
  - Burning sensation [Recovered/Resolved]
  - Pruritus [Recovered/Resolved]
  - Panic attack [Unknown]
  - Memory impairment [Unknown]
  - Electrolyte imbalance [Unknown]
  - Muscle spasms [Unknown]
  - Palpitations [Unknown]
  - Bradycardia [Unknown]
  - Dyspnoea [Unknown]
  - Lung disorder [Unknown]
  - Dehydration [Unknown]
  - Rash [Unknown]
  - Off label use [Unknown]
